FAERS Safety Report 15826298 (Version 1)
Quarter: 2019Q1

REPORT INFORMATION
  Report Type: Spontaneous
  Country: PL (occurrence: PL)
  Receive Date: 20190115
  Receipt Date: 20190115
  Transmission Date: 20190417
  Serious: Yes (Hospitalization, Other)
  Sender: FDA-Public Use
  Company Number: PHHY2019PL004280

PATIENT
  Age: 10 Year
  Sex: Male

DRUGS (1)
  1. AMOXICILLIN + CLAVULANATE POTASSIUM [Suspect]
     Active Substance: AMOXICILLIN\CLAVULANATE POTASSIUM
     Indication: STREPTOCOCCAL INFECTION
     Dosage: UNK
     Route: 065

REACTIONS (11)
  - Muscular weakness [Unknown]
  - Abnormal behaviour [Unknown]
  - Meningitis [Unknown]
  - Drug ineffective [Unknown]
  - Cerebellar syndrome [Unknown]
  - Gait disturbance [Unknown]
  - Pyrexia [Unknown]
  - Psychomotor retardation [Unknown]
  - Clumsiness [Unknown]
  - Somnolence [Unknown]
  - Encephalitis viral [Recovering/Resolving]
